FAERS Safety Report 14427595 (Version 1)
Quarter: 2018Q1

REPORT INFORMATION
  Report Type: Report from Study
  Country: None (occurrence: US)
  Receive Date: 20180123
  Receipt Date: 20180123
  Transmission Date: 20180509
  Serious: Yes (Death, Other)
  Sender: FDA-Public Use
  Company Number: US-ABBVIE-18P-163-2230229-00

PATIENT
  Age: 65 Year
  Sex: Female

DRUGS (1)
  1. VENCLEXTA [Suspect]
     Active Substance: VENETOCLAX
     Indication: LYMPHOMA
     Route: 048
     Dates: start: 20171027

REACTIONS (10)
  - Epistaxis [Unknown]
  - Mouth haemorrhage [Unknown]
  - Cerebral haemorrhage [Fatal]
  - Pyrexia [Unknown]
  - Pneumonia fungal [Unknown]
  - Lymphoma [Unknown]
  - Blood count abnormal [Unknown]
  - Off label use [Unknown]
  - Renal disorder [Unknown]
  - Platelet count decreased [Unknown]

NARRATIVE: CASE EVENT DATE: 20171027
